FAERS Safety Report 4450489-7 (Version None)
Quarter: 2004Q3

REPORT INFORMATION
  Report Type: 
  Country: None (occurrence: None)
  Receive Date: 20040914
  Receipt Date: 20040831
  Transmission Date: 20050211
  Serious: Yes (Life-Threatening, Hospitalization)
  Sender: FDA-Public Use
  Company Number: PIR 0408054

PATIENT
  Age: 77 Year
  Sex: Female
  Weight: 43 kg

DRUGS (1)
  1. PROCALAMINE [Suspect]
     Indication: PARENTERAL NUTRITION
     Dates: start: 20040815, end: 20040817

REACTIONS (4)
  - DIARRHOEA [None]
  - HAEMODIALYSIS [None]
  - HYPEROSMOLAR STATE [None]
  - RENAL FAILURE ACUTE [None]
